FAERS Safety Report 4802195-4 (Version None)
Quarter: 2005Q4

REPORT INFORMATION
  Report Type: 
  Country: None (occurrence: None)
  Receive Date: 20051017
  Receipt Date: 20051017
  Transmission Date: 20060501
  Serious: Yes (Other)
  Sender: FDA-Public Use
  Company Number: None

PATIENT
  Age: 8 Year
  Sex: Male
  Weight: 25.855 kg

DRUGS (2)
  1. CLARITHROMYCIN [Suspect]
     Indication: BRONCHITIS
     Dosage: ONE TABLET 2XDAY 10 DAYS PO
     Route: 048
     Dates: start: 20051013, end: 20051015
  2. CLARITHROMYCIN [Suspect]
     Indication: PNEUMONIA
     Dosage: ONE TABLET 2XDAY 10 DAYS PO
     Route: 048
     Dates: start: 20051013, end: 20051015

REACTIONS (4)
  - FEELING ABNORMAL [None]
  - PYREXIA [None]
  - RASH MACULO-PAPULAR [None]
  - RASH PRURITIC [None]
